FAERS Safety Report 9735322 (Version 1)
Quarter: 2013Q4

REPORT INFORMATION
  Report Type: Spontaneous
  Country: DE (occurrence: DE)
  Receive Date: 20131206
  Receipt Date: 20131206
  Transmission Date: 20140711
  Serious: Yes (Death, Congenital Anomaly)
  Sender: FDA-Public Use
  Company Number: DE-ASTRAZENECA-2013SE88351

PATIENT
  Age: 0 Week
  Sex: 0

DRUGS (6)
  1. PROPOFOL [Suspect]
     Indication: LAPAROSCOPY
     Route: 064
     Dates: start: 20080829, end: 20080829
  2. FENTANYL [Suspect]
     Indication: LAPAROSCOPY
     Route: 064
     Dates: start: 20080829, end: 20080829
  3. ROCURONIUM [Suspect]
     Indication: LAPAROSCOPY
     Route: 064
     Dates: start: 20080829, end: 20080829
  4. AKRINOR [Suspect]
     Indication: LAPAROSCOPY
     Route: 064
     Dates: start: 20080829, end: 20080829
  5. METAMIZOL [Suspect]
     Indication: LAPAROSCOPY
     Route: 064
     Dates: start: 20080829, end: 20080829
  6. SALBUTAMOL [Concomitant]
     Indication: ASTHMA
     Dosage: AS REQUIRED
     Route: 064
     Dates: start: 20080721, end: 20081020

REACTIONS (1)
  - Anencephaly [Fatal]
